FAERS Safety Report 9008219 (Version 1)
Quarter: 2013Q1

REPORT INFORMATION
  Report Type: Spontaneous
  Country: FR (occurrence: FR)
  Receive Date: 20130111
  Receipt Date: 20130111
  Transmission Date: 20140127
  Serious: Yes (Life-Threatening, Hospitalization)
  Sender: FDA-Public Use
  Company Number: PHHY2013FR002481

PATIENT
  Age: 67 Year
  Sex: Female

DRUGS (13)
  1. TASIGNA [Suspect]
     Indication: CHRONIC MYELOID LEUKAEMIA
     Dosage: 400 MG, QD
     Route: 048
     Dates: start: 201111
  2. TASIGNA [Suspect]
     Dosage: 300 MG, BID
     Route: 048
  3. LEVOTHYROX [Concomitant]
  4. DIFFU K [Concomitant]
  5. VERATRAN [Concomitant]
  6. VENLAFAXIN [Concomitant]
  7. STILNOX [Concomitant]
     Dosage: UNK
  8. KARDEGIC [Concomitant]
  9. TAHOR [Concomitant]
  10. AERIUS [Concomitant]
     Dosage: UNK
  11. LOVENOX [Concomitant]
  12. PERFALGAN [Concomitant]
  13. FUROSEMIDE [Concomitant]

REACTIONS (1)
  - Ischaemic stroke [Not Recovered/Not Resolved]
